FAERS Safety Report 8973003 (Version 1)
Quarter: 2012Q4

REPORT INFORMATION
  Report Type: 
  Country: US (occurrence: US)
  Receive Date: 20121218
  Receipt Date: 20121218
  Transmission Date: 20130627
  Serious: No
  Sender: FDA-Public Use
  Company Number: US-BRISTOL-MYERS SQUIBB COMPANY-16470189

PATIENT
  Age: 49 Year
  Sex: Female

DRUGS (4)
  1. ABILIFY [Suspect]
     Dosage: interrupted on Oct11
frm Dec11 5mg
  2. TRAZODONE HCL [Suspect]
  3. LITHIUM [Suspect]
  4. SEROQUEL [Suspect]

REACTIONS (2)
  - Akathisia [Recovered/Resolved]
  - Tardive dyskinesia [Not Recovered/Not Resolved]
